FAERS Safety Report 17535689 (Version 1)
Quarter: 2020Q1

REPORT INFORMATION
  Report Type: Report from Study
  Country: None (occurrence: IE)
  Receive Date: 20200312
  Receipt Date: 20200312
  Transmission Date: 20200409
  Serious: Yes (Hospitalization)
  Sender: FDA-Public Use
  Company Number: IE-ABBVIE-20K-229-3302542-00

PATIENT
  Age: 9 Month
  Sex: Male

DRUGS (6)
  1. SYNAGIS [Suspect]
     Active Substance: PALIVIZUMAB
     Dosage: SEASON 1
     Route: 030
     Dates: start: 20200205, end: 2020
  2. SYNAGIS [Suspect]
     Active Substance: PALIVIZUMAB
     Route: 030
  3. SYNAGIS [Suspect]
     Active Substance: PALIVIZUMAB
     Indication: PREMATURE BABY
     Dosage: SEASON 1
     Route: 030
     Dates: start: 20191014, end: 20191014
  4. SYNAGIS [Suspect]
     Active Substance: PALIVIZUMAB
     Dosage: SEASON 1
     Route: 030
     Dates: start: 20200309
  5. FUROSEMIDE. [Concomitant]
     Active Substance: FUROSEMIDE
     Indication: PRODUCT USED FOR UNKNOWN INDICATION
     Route: 050
  6. SPIRONOLACTONE. [Concomitant]
     Active Substance: SPIRONOLACTONE
     Indication: PRODUCT USED FOR UNKNOWN INDICATION
     Route: 050

REACTIONS (3)
  - Respiratory tract infection viral [Recovered/Resolved]
  - Viral infection [Recovered/Resolved]
  - Heart rate increased [Recovered/Resolved]

NARRATIVE: CASE EVENT DATE: 20200225
